FAERS Safety Report 8035938-X (Version None)
Quarter: 2012Q1

REPORT INFORMATION
  Report Type: 
  Country: None (occurrence: None)
  Receive Date: 20120111
  Receipt Date: 20120103
  Transmission Date: 20120608
  Serious: Yes (Other)
  Sender: FDA-Public Use
  Company Number: US-BAYER-2011-040147

PATIENT
  Age: 25 Year
  Sex: Female
  Weight: 72.562 kg

DRUGS (9)
  1. YASMIN [Suspect]
     Indication: CONTRACEPTION
     Dosage: UNK
     Dates: start: 20070501, end: 20080601
  2. IBUPROFEN (ADVIL) [Concomitant]
     Dosage: 3 DF, UNK
     Dates: start: 20060101
  3. FOLIC ACID [Concomitant]
     Dosage: 1 DF, QD
     Dates: start: 20090331
  4. FAMOTIDINE [Concomitant]
  5. DROSPIRENONE AND ETHINYL ESTRADIOL [Suspect]
     Indication: CONTRACEPTION
     Dosage: UNK
     Dates: start: 20080701, end: 20091001
  6. TRI-SPRINTEC [Concomitant]
     Dosage: UNK
     Dates: start: 20080101, end: 20100101
  7. CALCIUM ACETATE [Concomitant]
     Dosage: 1200 MG, QD
     Dates: start: 20090331
  8. PRILOSEC [Concomitant]
  9. VITAMIN D [Concomitant]
     Dosage: 400 IU, QD
     Dates: start: 20090331

REACTIONS (3)
  - GALLBLADDER DISORDER [None]
  - PAIN [None]
  - CHOLECYSTITIS CHRONIC [None]
